FAERS Safety Report 7514191-7 (Version None)
Quarter: 2011Q2

REPORT INFORMATION
  Report Type: 
  Country: None (occurrence: None)
  Receive Date: 20110531
  Receipt Date: 20110531
  Transmission Date: 20111010
  Serious: Yes (Other)
  Sender: FDA-Public Use
  Company Number: IT-ABBOTT-10P-083-0683345-00

PATIENT
  Age: 3 Year
  Sex: Female

DRUGS (5)
  1. TRIHEXYPHENIDYL HCL [Interacting]
     Indication: DYSTONIA
  2. TRIHEXYPHENIDYL HCL [Interacting]
  3. VALPROATE SODIUM [Suspect]
     Indication: EPILEPSY
  4. LEVETIRACETAM [Concomitant]
     Indication: EPILEPSY
  5. VALPROATE SODIUM [Interacting]

REACTIONS (3)
  - DRUG LEVEL DECREASED [None]
  - CONVULSION [None]
  - DRUG INTERACTION [None]
